FAERS Safety Report 17216227 (Version 1)
Quarter: 2019Q4

REPORT INFORMATION
  Report Type: Spontaneous
  Country: US (occurrence: US)
  Receive Date: 20191230
  Receipt Date: 20191230
  Transmission Date: 20200122
  Serious: Yes (Hospitalization, Other)
  Sender: FDA-Public Use
  Company Number: US-PFM-2019-15651

PATIENT
  Age: 12 Month
  Sex: Female
  Weight: 7.9 kg

DRUGS (1)
  1. HEMANGEOL [Suspect]
     Active Substance: PROPRANOLOL HYDROCHLORIDE
     Indication: INFANTILE HAEMANGIOMA
     Dosage: 3 ML, BID (2/DAY)
     Route: 065
     Dates: start: 20190327

REACTIONS (5)
  - Hypoglycaemia [Unknown]
  - Malaise [Unknown]
  - Hypothermia [Unknown]
  - Product use issue [Unknown]
  - Off label use [Unknown]

NARRATIVE: CASE EVENT DATE: 201911
